FAERS Safety Report 14762629 (Version 1)
Quarter: 2018Q2

REPORT INFORMATION
  Report Type: Spontaneous
  Country: US (occurrence: US)
  Receive Date: 20180416
  Receipt Date: 20180416
  Transmission Date: 20180711
  Serious: No
  Sender: FDA-Public Use
  Company Number: US-TEVA-2018-US-880466

PATIENT
  Age: 59 Year
  Sex: Female

DRUGS (1)
  1. MORPHINE EXTENDED RELEASE [Suspect]
     Active Substance: MORPHINE
     Indication: BACK DISORDER
     Dates: start: 20180402

REACTIONS (5)
  - Nausea [Unknown]
  - Migraine [Unknown]
  - Vomiting [Unknown]
  - Rash [Unknown]
  - Pruritus generalised [Unknown]

NARRATIVE: CASE EVENT DATE: 20180402
